FAERS Safety Report 26132257 (Version 1)
Quarter: 2025Q4

REPORT INFORMATION
  Report Type: Report from Study
  Country: US (occurrence: None)
  Receive Date: 20251208
  Receipt Date: 20251208
  Transmission Date: 20260117
  Serious: Yes (Other)
  Sender: UCB
  Company Number: US-UCBSA-2025077519

PATIENT
  Age: 32 Year

DRUGS (1)
  1. CERTOLIZUMAB PEGOL [Suspect]
     Active Substance: CERTOLIZUMAB PEGOL
     Indication: Ankylosing spondylitis
     Dosage: 2 DOSES ON FIRST DAY, THEN 2 DOSES IN 2 WEEKS, THEN 1 DOSE AGAIN ON THE FOURTH WEEK

REACTIONS (3)
  - Injection site erythema [Recovering/Resolving]
  - Pruritus [Recovering/Resolving]
  - Ocular hyperaemia [Recovering/Resolving]
